FAERS Safety Report 19399526 (Version 2)
Quarter: 2021Q2

REPORT INFORMATION
  Report Type: Spontaneous
  Country: DE (occurrence: DE)
  Receive Date: 20210610
  Receipt Date: 20210617
  Transmission Date: 20210717
  Serious: Yes (Other)
  Sender: FDA-Public Use
  Company Number: DE-ASTRAZENECA-2021A504974

PATIENT
  Age: 22715 Day
  Sex: Female
  Weight: 109 kg

DRUGS (2)
  1. FORXIGA [Suspect]
     Active Substance: DAPAGLIFLOZIN
     Indication: DIABETES MELLITUS
     Route: 048
     Dates: start: 20210514, end: 20210523
  2. RAMILICH [Concomitant]
     Active Substance: RAMIPRIL
     Indication: HYPERTENSION
     Route: 065

REACTIONS (13)
  - Discomfort [Unknown]
  - Dizziness [Unknown]
  - Dyschezia [Unknown]
  - Therapy cessation [Unknown]
  - Pain [Unknown]
  - Nausea [Unknown]
  - Faeces hard [Unknown]
  - Bladder pain [Unknown]
  - Abdominal pain [Unknown]
  - Constipation [Recovered/Resolved]
  - Pollakiuria [Unknown]
  - Intestinal obstruction [Unknown]
  - Dysuria [Recovered/Resolved]

NARRATIVE: CASE EVENT DATE: 20210518
